FAERS Safety Report 15785178 (Version 5)
Quarter: 2020Q1

REPORT INFORMATION
  Report Type: Spontaneous
  Country: US (occurrence: US)
  Receive Date: 20190103
  Receipt Date: 20200206
  Transmission Date: 20200409
  Serious: Yes (Other)
  Sender: FDA-Public Use
  Company Number: US-PFIZER INC-2018532787

PATIENT
  Age: 66 Year
  Sex: Female
  Weight: 54 kg

DRUGS (9)
  1. IBRANCE [Suspect]
     Active Substance: PALBOCICLIB
     Dosage: 125 UNK, UNK (ONCE DAILY FOR THREE WEEKS ON AND 1 WEEK OFF)
     Route: 048
     Dates: start: 20181117
  2. PANTOPRAZOLE [Concomitant]
     Active Substance: PANTOPRAZOLE
     Dosage: 40 MG, DAILY (1 TABLET TAKEN BY MOUTH AFTER EACH MEAL DAILY)
     Route: 048
  3. IBRANCE [Suspect]
     Active Substance: PALBOCICLIB
     Indication: BREAST CANCER FEMALE
     Dosage: 125 MG, CYCLIC (BY MOUTH DAILY FOR 21 DAYS ON AND 7 DAYS OFF)
     Route: 048
     Dates: start: 20181117, end: 2018
  4. PROMETHAZINE [Concomitant]
     Active Substance: PROMETHAZINE HYDROCHLORIDE
     Indication: NAUSEA
     Dosage: 25 MG, AS NEEDED (1 TABLET TAKEN BY MOUTH EVERY 6 HOURS AS NEEDED)
     Route: 048
  5. ONDANSETRON [Concomitant]
     Active Substance: ONDANSETRON
     Indication: NAUSEA
     Dosage: 8 MG, AS NEEDED (1 TABLET TAKEN BY MOUTH EVERY 8 HOURS AS NEEDED)
     Route: 048
  6. DEXAMETHASONE. [Concomitant]
     Active Substance: DEXAMETHASONE
     Dosage: 4 MG, 1X/DAY (1 TABLET TAKEN BY MOUTH ONCE DAILY WITH BREAKFAST FOR 10 DAYS)
     Route: 048
     Dates: start: 201804
  7. LETROZOLE. [Concomitant]
     Active Substance: LETROZOLE
     Indication: BREAST CANCER
     Dosage: 2.5 MG, DAILY
     Route: 048
     Dates: start: 20181117
  8. CYCLOBENZAPRINE HYDROCHLORIDE. [Concomitant]
     Active Substance: CYCLOBENZAPRINE HYDROCHLORIDE
     Indication: MUSCLE SPASMS
     Dosage: 10 MG, AS NEEDED (1 TABLET TAKEN BY MOUTH THREE TIMES DAILY AS NEEDED)
     Route: 048
     Dates: start: 20190122
  9. HYDROCODONE/ACETAMINOPHEN [Concomitant]
     Active Substance: ACETAMINOPHEN\HYDROCODONE
     Indication: PAIN
     Dosage: UNK UNK, AS NEEDED (10/325MG TABLET-1 TABLET TAKEN BY MOUTH EVERY 6 HOURS AS NEEDED)
     Route: 048
     Dates: start: 2018

REACTIONS (5)
  - Second primary malignancy [Unknown]
  - Neoplasm malignant [Unknown]
  - White blood cell count decreased [Recovered/Resolved]
  - Weight fluctuation [Unknown]
  - Blood count abnormal [Unknown]

NARRATIVE: CASE EVENT DATE: 20181214
